FAERS Safety Report 5675395-1 (Version None)
Quarter: 2008Q2

REPORT INFORMATION
  Report Type: 
  Country: None (occurrence: None)
  Receive Date: 20080307
  Receipt Date: 20070214
  Transmission Date: 20081010
  Serious: Yes (Hospitalization)
  Sender: FDA-Public Use
  Company Number: US200702003467

PATIENT
  Age: 79 Year
  Sex: Female

DRUGS (11)
  1. GEMZAR [Suspect]
     Indication: OVARIAN CANCER
     Dates: start: 20030918, end: 20041110
  2. CARDIZEM /00489701/ (DILTIZEM) [Concomitant]
  3. COUMADIN [Concomitant]
  4. LEVOXYL [Concomitant]
  5. COMPAZINE [Concomitant]
  6. ATIVAN [Concomitant]
  7. TRIAZOLE DERIVATIVES [Concomitant]
  8. POTASSIUM CHLORIDE [Concomitant]
  9. NORVASC [Concomitant]
  10. VASOTEC [Concomitant]
  11. DIGOXIN [Concomitant]

REACTIONS (1)
  - RESPIRATORY FAILURE [None]
